FAERS Safety Report 15526700 (Version 3)
Quarter: 2018Q4

REPORT INFORMATION
  Report Type: Report from Study
  Country: FR (occurrence: FR)
  Receive Date: 20181018
  Receipt Date: 20181026
  Transmission Date: 20190205
  Serious: Yes (Other)
  Sender: FDA-Public Use
  Company Number: FR-PFIZER INC-2018420025

PATIENT

DRUGS (3)
  1. RITUXIMAB. [Suspect]
     Active Substance: RITUXIMAB
     Indication: GLOMERULONEPHROPATHY
     Dosage: 375 MG/M2, X4
     Route: 042
  2. METHYLPREDNISOLONE SODIUM SUCCINATE. [Suspect]
     Active Substance: METHYLPREDNISOLONE SODIUM SUCCINATE
     Indication: GOODPASTURE^S SYNDROME
     Dosage: PULSES OF METHYLPREDNISOLONE WERE GIVEN FOLLOWED BY PREDNISOLON
  3. PREDNISONE. [Suspect]
     Active Substance: PREDNISONE
     Indication: GOODPASTURE^S SYNDROME
     Dosage: GIVEN AFTER METHYLPREDNISOLONE, AND GRADUALLY RAPERED.

REACTIONS (4)
  - Leukopenia [Unknown]
  - Infection [Unknown]
  - Thrombocytopenia [Unknown]
  - Oesophageal candidiasis [Unknown]
